FAERS Safety Report 26144746 (Version 1)
Quarter: 2025Q4

REPORT INFORMATION
  Report Type: Spontaneous
  Country: US (occurrence: US)
  Receive Date: 20251211
  Receipt Date: 20251211
  Transmission Date: 20260117
  Serious: Yes (Other)
  Sender: MYLAN
  Company Number: US-MYLANLABS-2025M1104597

PATIENT
  Age: 70 Year
  Sex: Female

DRUGS (4)
  1. RIVASTIGMINE TRANSDERMAL SYSTEM [Suspect]
     Active Substance: RIVASTIGMINE
     Indication: Delirium
     Dosage: UNK; PATCH
  2. VALPROIC ACID [Suspect]
     Active Substance: VALPROIC ACID
     Indication: Delirium
     Dosage: UNK
  3. TRAZODONE [Suspect]
     Active Substance: TRAZODONE HYDROCHLORIDE
     Indication: Delirium
     Dosage: UNK
  4. RISPERIDONE [Suspect]
     Active Substance: RISPERIDONE
     Indication: Delirium
     Dosage: UNK

REACTIONS (2)
  - Drug ineffective [Unknown]
  - Off label use [Unknown]
